FAERS Safety Report 21633603 (Version 1)
Quarter: 2022Q4

REPORT INFORMATION
  Report Type: Spontaneous
  Country: CA (occurrence: CA)
  Receive Date: 20221123
  Receipt Date: 20221123
  Transmission Date: 20230113
  Serious: Yes (Other)
  Sender: FDA-Public Use
  Company Number: CA-PFIZER INC-202201248700

PATIENT
  Age: 25 Year
  Sex: Male

DRUGS (1)
  1. ABRILADA [Suspect]
     Active Substance: ADALIMUMAB-AFZB
     Indication: Crohn^s disease
     Dosage: WEEK 0 160 MG, WEEK 2 80 MG AND THEN 40 MG EVERY OTHER WEEK
     Route: 058
     Dates: start: 20220819

REACTIONS (3)
  - Suicidal ideation [Recovered/Resolved]
  - Fatigue [Unknown]
  - Stress [Recovered/Resolved]

NARRATIVE: CASE EVENT DATE: 20220801
